FAERS Safety Report 11434950 (Version 3)
Quarter: 2015Q3

REPORT INFORMATION
  Report Type: Spontaneous
  Country: CH (occurrence: NL)
  Receive Date: 20150831
  Receipt Date: 20150924
  Transmission Date: 20151125
  Serious: Yes (Hospitalization)
  Sender: FDA-Public Use
  Company Number: CH-LPDUSPRD-20150652

PATIENT
  Age: 81 Year
  Sex: Female

DRUGS (8)
  1. FERINJECT [Suspect]
     Active Substance: FERRIC CARBOXYMALTOSE
     Dosage: 1000 MG 1 IN 1 TOTAL
     Route: 041
     Dates: start: 20150720
  2. CREON FORTE [Concomitant]
     Dosage: 1 DOSAGE FORM, 2 IN 1 D
     Route: 065
  3. SPIRONOLACTONE. [Concomitant]
     Active Substance: SPIRONOLACTONE
     Dosage: 12.5 MG 3 IN 1 WK
     Route: 065
  4. ASACAL [Concomitant]
     Dosage: 100 MG, 1 IN 1 D
     Route: 065
  5. ESOMEPRAZOLE, ESOMEPRAZOL MAGNESIUM-2-WATER [Concomitant]
     Dosage: 40 MG 1 IN 1 D
     Route: 065
  6. FUROSEMIDE. [Concomitant]
     Active Substance: FUROSEMIDE
     Dosage: 20 MG 1 IN 1 D
     Route: 065
  7. PERINDOPRIL ERBUMINE. [Concomitant]
     Active Substance: PERINDOPRIL ERBUMINE
     Dosage: 1 IN 1 D
     Route: 065
     Dates: end: 20150810
  8. MIRABEGRON [Concomitant]
     Active Substance: MIRABEGRON
     Dosage: DOSE NOT PROVIDED
     Route: 065

REACTIONS (8)
  - Melaena [Recovered/Resolved]
  - Bone disorder [Recovered/Resolved]
  - Hyperphosphaturia [Recovered/Resolved]
  - Hypokalaemia [Recovered/Resolved]
  - Fatigue [Recovered/Resolved]
  - Thrombocytopenia [Recovered/Resolved]
  - Hypophosphataemia [Recovered/Resolved]
  - Hypocalcaemia [Recovered/Resolved]

NARRATIVE: CASE EVENT DATE: 20150805
